FAERS Safety Report 9671202 (Version 2)
Quarter: 2013Q4

REPORT INFORMATION
  Report Type: Report from Study
  Country: SI (occurrence: SI)
  Receive Date: 20131106
  Receipt Date: 20131202
  Transmission Date: 20140711
  Serious: Yes (Life-Threatening, Hospitalization, Disabling)
  Sender: FDA-Public Use
  Company Number: SI-ASTELLAS-2013EU009625

PATIENT
  Age: 67 Year
  Sex: Male

DRUGS (8)
  1. ADVAGRAF [Suspect]
     Indication: IMMUNOSUPPRESSION
     Dosage: 3 MG, UID/QD
     Route: 048
     Dates: start: 20130320
  2. BIOXAN [Concomitant]
     Dosage: UNK
     Route: 065
  3. RIVOTRIL [Concomitant]
     Dosage: UNK
     Route: 065
  4. ASPIRIN PROTECT [Concomitant]
     Dosage: UNK
     Route: 065
  5. LESCOL XL [Concomitant]
     Dosage: UNK
     Route: 065
  6. CALCII CARBONAS [Concomitant]
     Dosage: UNK
     Route: 065
  7. ALOPURINOL [Concomitant]
     Dosage: UNK
     Route: 065
  8. FRAGMIN [Concomitant]
     Dosage: UNK
     Route: 065

REACTIONS (3)
  - Pneumonia [Recovering/Resolving]
  - Respiratory failure [Recovering/Resolving]
  - Laryngeal stenosis [Recovering/Resolving]
